FAERS Safety Report 17957401 (Version 1)
Quarter: 2020Q2

REPORT INFORMATION
  Report Type: Spontaneous
  Country: CN (occurrence: CN)
  Receive Date: 20200629
  Receipt Date: 20200629
  Transmission Date: 20200714
  Serious: Yes (Other)
  Sender: FDA-Public Use
  Company Number: CN-ELI_LILLY_AND_COMPANY-CN202006009817

PATIENT
  Age: 26 Year
  Sex: Female
  Weight: 70 kg

DRUGS (4)
  1. CARBOPLATIN. [Suspect]
     Active Substance: CARBOPLATIN
     Indication: CHEMOTHERAPY
     Dosage: 0.5 G, CYCLICAL
     Route: 041
     Dates: start: 20200312, end: 20200523
  2. ALIMTA [Suspect]
     Active Substance: PEMETREXED DISODIUM
     Indication: CHEMOTHERAPY
     Dosage: 0.8 G, CYCLICAL
     Route: 041
     Dates: start: 20200312, end: 20200523
  3. GLUCOSE [Concomitant]
     Active Substance: DEXTROSE
     Indication: CHEMOTHERAPY
     Dosage: 500 ML, DAILY
     Route: 041
     Dates: start: 20200523, end: 20200523
  4. SODIUM CHLORIDE. [Concomitant]
     Active Substance: SODIUM CHLORIDE
     Indication: CHEMOTHERAPY
     Dosage: 100 ML, DAILY
     Route: 041
     Dates: start: 20200523, end: 20200523

REACTIONS (4)
  - Ear pain [Recovering/Resolving]
  - Ear swelling [Recovering/Resolving]
  - Swelling face [Recovering/Resolving]
  - Deafness bilateral [Recovering/Resolving]

NARRATIVE: CASE EVENT DATE: 20200526
